FAERS Safety Report 7760958-X (Version None)
Quarter: 2011Q3

REPORT INFORMATION
  Report Type: 
  Country: None (occurrence: None)
  Receive Date: 20110920
  Receipt Date: 20110912
  Transmission Date: 20111222
  Serious: Yes (Hospitalization, Other)
  Sender: FDA-Public Use
  Company Number: FR-BRISTOL-MYERS SQUIBB COMPANY-16057135

PATIENT
  Age: 83 Year
  Sex: Female

DRUGS (2)
  1. COUMADIN [Suspect]
     Indication: THROMBOSIS PROPHYLAXIS
     Dates: end: 20110219
  2. PREDNISONE [Concomitant]
     Route: 048

REACTIONS (2)
  - RECTAL HAEMORRHAGE [None]
  - CLOSTRIDIAL INFECTION [None]
